FAERS Safety Report 15848916 (Version 2)
Quarter: 2019Q1

REPORT INFORMATION
  Report Type: Spontaneous
  Country: RO (occurrence: RO)
  Receive Date: 20190121
  Receipt Date: 20190125
  Transmission Date: 20190417
  Serious: Yes (Hospitalization, Other)
  Sender: FDA-Public Use
  Company Number: RO-JNJFOC-20190113479

PATIENT
  Age: 54 Year
  Sex: Male

DRUGS (11)
  1. MIRTAZAPINE. [Suspect]
     Active Substance: MIRTAZAPINE
     Indication: ANTIDEPRESSANT THERAPY
     Route: 065
  2. RISPERIDONE. [Suspect]
     Active Substance: RISPERIDONE
     Indication: PSYCHOTIC SYMPTOM
     Route: 065
  3. ESCITALOPRAM [Suspect]
     Active Substance: ESCITALOPRAM OXALATE
     Indication: ANTIDEPRESSANT THERAPY
     Route: 065
  4. DOXEPINE [Suspect]
     Active Substance: DOXEPIN
     Indication: ANTIDEPRESSANT THERAPY
     Route: 065
  5. QUETIAPINE. [Suspect]
     Active Substance: QUETIAPINE
     Indication: ANTIDEPRESSANT THERAPY
     Route: 065
  6. CLONAZEPAM. [Suspect]
     Active Substance: CLONAZEPAM
     Indication: ANTIDEPRESSANT THERAPY
     Route: 065
  7. OLANZAPINE. [Suspect]
     Active Substance: OLANZAPINE
     Indication: PSYCHOTIC SYMPTOM
     Route: 065
  8. QUETIAPINE. [Suspect]
     Active Substance: QUETIAPINE
     Indication: ANTIDEPRESSANT THERAPY
     Route: 065
  9. DULOXETINE. [Suspect]
     Active Substance: DULOXETINE
     Indication: ANTIDEPRESSANT THERAPY
     Route: 065
  10. QUETIAPINE. [Suspect]
     Active Substance: QUETIAPINE
     Indication: MAJOR DEPRESSION
     Route: 065
  11. QUETIAPINE. [Suspect]
     Active Substance: QUETIAPINE
     Indication: MAJOR DEPRESSION
     Route: 065

REACTIONS (27)
  - Depression [Recovering/Resolving]
  - Libido decreased [Recovering/Resolving]
  - Somatic symptom disorder [Recovering/Resolving]
  - Anxiety [Recovering/Resolving]
  - Bronchitis [Recovering/Resolving]
  - Headache [Recovering/Resolving]
  - Dizziness [Recovering/Resolving]
  - Depressed mood [Recovering/Resolving]
  - Chest discomfort [Recovering/Resolving]
  - Illness anxiety disorder [Recovering/Resolving]
  - Drug ineffective [Unknown]
  - Decreased appetite [Recovering/Resolving]
  - Insomnia [Recovering/Resolving]
  - Loss of personal independence in daily activities [Recovering/Resolving]
  - Abdominal pain [Recovering/Resolving]
  - Obsessive-compulsive personality disorder [Recovering/Resolving]
  - Weight decreased [Recovering/Resolving]
  - Memory impairment [Recovering/Resolving]
  - Condition aggravated [Unknown]
  - Helplessness [Recovering/Resolving]
  - Dyspnoea [Recovering/Resolving]
  - Treatment noncompliance [Recovering/Resolving]
  - Fatigue [Recovering/Resolving]
  - Feeling guilty [Recovering/Resolving]
  - Chronic gastritis [Recovering/Resolving]
  - Hypertension [Recovering/Resolving]
  - Self esteem decreased [Recovering/Resolving]
